FAERS Safety Report 11676443 (Version 5)
Quarter: 2016Q2

REPORT INFORMATION
  Report Type: Report from Study
  Country: US (occurrence: US)
  Receive Date: 20151028
  Receipt Date: 20160404
  Transmission Date: 20160815
  Serious: No
  Sender: FDA-Public Use
  Company Number: US-AMGEN-USASL2015112212

PATIENT
  Age: 62 Year
  Sex: Female

DRUGS (2)
  1. ENBREL [Suspect]
     Active Substance: ETANERCEPT
     Indication: RHEUMATOID ARTHRITIS
     Dosage: 50 MG, QWK
     Route: 065
     Dates: start: 20150918
  2. ENBREL [Suspect]
     Active Substance: ETANERCEPT
     Dosage: 50 MG, QWK
     Route: 065
     Dates: start: 20151211

REACTIONS (14)
  - Tension [Unknown]
  - Skin discolouration [Unknown]
  - Injection site swelling [Unknown]
  - Injection site pain [Unknown]
  - Muscle strain [Recovering/Resolving]
  - Back pain [Unknown]
  - Injection site erythema [Not Recovered/Not Resolved]
  - Walking aid user [Unknown]
  - Stress [Unknown]
  - Injection site mass [Recovered/Resolved]
  - Injection site vesicles [Recovering/Resolving]
  - Fatigue [Unknown]
  - Paraesthesia [Unknown]
  - Injection site bruising [Unknown]

NARRATIVE: CASE EVENT DATE: 2015
